FAERS Safety Report 8858732 (Version 1)
Quarter: 2012Q4

REPORT INFORMATION
  Report Type: 
  Country: US (occurrence: US)
  Receive Date: 20121024
  Receipt Date: 20121024
  Transmission Date: 20130627
  Serious: Yes (Other)
  Sender: FDA-Public Use
  Company Number: US-009507513-1210USA009495

PATIENT
  Age: 54 Year
  Sex: Female

DRUGS (8)
  1. JANUMET [Suspect]
     Indication: DIABETES MELLITUS
     Dosage: 1 DF, bid
     Route: 048
  2. NIASPAN [Concomitant]
  3. LOTREL [Concomitant]
  4. COREG [Concomitant]
  5. LANTUS SOLOSTAR [Concomitant]
  6. HUMALOG INSULIN [Concomitant]
  7. HYDROCHLOROTHIAZIDE [Concomitant]
  8. ASPIRIN [Concomitant]

REACTIONS (1)
  - Pancreatic carcinoma [Unknown]
